FAERS Safety Report 4988556-1 (Version None)
Quarter: 2006Q2

REPORT INFORMATION
  Report Type: 
  Country: None (occurrence: None)
  Receive Date: 20060502
  Receipt Date: 20060424
  Transmission Date: 20061013
  Serious: Yes (Other)
  Sender: FDA-Public Use
  Company Number: GB-GLAXOSMITHKLINE-B0421550A

PATIENT
  Sex: Male

DRUGS (1)
  1. SEROXAT [Suspect]
     Route: 065
     Dates: start: 20010717, end: 20030501

REACTIONS (4)
  - ILL-DEFINED DISORDER [None]
  - INSOMNIA [None]
  - LETHARGY [None]
  - SUICIDAL IDEATION [None]
